FAERS Safety Report 8141248-2 (Version None)
Quarter: 2012Q1

REPORT INFORMATION
  Report Type: 
  Country: None (occurrence: None)
  Receive Date: 20120216
  Receipt Date: 20120208
  Transmission Date: 20120608
  Serious: Yes (Hospitalization)
  Sender: FDA-Public Use
  Company Number: JP-ROCHE-1034882

PATIENT
  Sex: Female
  Weight: 60 kg

DRUGS (5)
  1. DIFLAL [Concomitant]
     Indication: DERMATITIS CONTACT
     Route: 061
     Dates: start: 20101227
  2. ACTEMRA [Suspect]
     Route: 042
     Dates: start: 20100913
  3. LOXONIN [Concomitant]
     Indication: RHEUMATOID ARTHRITIS
     Route: 061
  4. WHITE PETROLATUM [Concomitant]
     Indication: DERMATITIS CONTACT
     Route: 061
     Dates: start: 20101227
  5. ACTEMRA [Suspect]
     Indication: RHEUMATOID ARTHRITIS
     Route: 058
     Dates: start: 20110307

REACTIONS (1)
  - GASTROENTERITIS [None]
